FAERS Safety Report 6140353-X (Version None)
Quarter: 2009Q1

REPORT INFORMATION
  Report Type: 
  Country: None (occurrence: None)
  Receive Date: 20090330
  Receipt Date: 20090318
  Transmission Date: 20090719
  Serious: Yes (Hospitalization)
  Sender: FDA-Public Use
  Company Number: WAES 0812USA04705

PATIENT
  Age: 81 Year
  Sex: Female

DRUGS (19)
  1. FOSAMAX [Suspect]
     Indication: OSTEOPOROSIS
     Dosage: 35 MG/WKY PO
     Route: 048
     Dates: start: 20081107, end: 20090123
  2. ARICEPT [Concomitant]
  3. ASPARA K [Concomitant]
  4. AZUCURENIN S [Concomitant]
  5. DEPAS [Concomitant]
  6. FARNEZONE [Concomitant]
  7. LASIX [Concomitant]
  8. MAINTATE [Concomitant]
  9. MYONAL [Concomitant]
  10. NU-LOTAN [Concomitant]
  11. PAXIL [Concomitant]
  12. PERDIPINE [Concomitant]
  13. PRORANON [Concomitant]
  14. PYDOXAL [Concomitant]
  15. SENNAL [Concomitant]
  16. ZESTAK [Concomitant]
  17. ZYPREXA [Concomitant]
  18. CALCIUM (UNSPECIFIED) [Concomitant]
  19. CHOLECALCIFEROL (+) VITAMIN A [Concomitant]

REACTIONS (4)
  - ANGINA PECTORIS [None]
  - AORTIC VALVE INCOMPETENCE [None]
  - ELECTROCARDIOGRAM ST SEGMENT DEPRESSION [None]
  - PALPITATIONS [None]
